FAERS Safety Report 4882582-9 (Version None)
Quarter: 2006Q1

REPORT INFORMATION
  Report Type: 
  Country: None (occurrence: None)
  Receive Date: 20060117
  Receipt Date: 20051005
  Transmission Date: 20060701
  Serious: Yes (Death, Hospitalization)
  Sender: FDA-Public Use
  Company Number: US-MERCK-0510USA03891

PATIENT
  Age: 51 Year
  Sex: Male
  Weight: 115 kg

DRUGS (12)
  1. VIOXX [Suspect]
     Indication: PAIN
     Route: 048
     Dates: start: 20000309, end: 20021214
  2. VIOXX [Suspect]
     Indication: OSTEOARTHRITIS
     Route: 048
     Dates: start: 20000309, end: 20021214
  3. ALLOPURINOL [Concomitant]
     Indication: PAIN
     Route: 065
  4. ISOPTIN [Concomitant]
     Indication: CARDIAC DISORDER
     Route: 065
  5. POTASSIUM CHLORIDE [Concomitant]
     Indication: BLOOD POTASSIUM DECREASED
     Route: 065
  6. MAXZIDE [Concomitant]
     Indication: HYPERTENSION
     Route: 065
  7. IMDUR [Concomitant]
     Indication: HYPERTENSION
     Route: 065
  8. ASPIRIN [Concomitant]
     Route: 065
  9. PREVACID [Concomitant]
     Indication: GASTROOESOPHAGEAL REFLUX DISEASE
     Route: 065
  10. [THERAPY UNSPECIFIED] [Concomitant]
     Route: 065
  11. [THERAPY UNSPECIFIED] [Concomitant]
     Route: 065
  12. MORPHINA [Concomitant]
     Indication: PAIN
     Route: 065
     Dates: start: 20011206

REACTIONS (21)
  - ACUTE MYOCARDIAL INFARCTION [None]
  - ALCOHOL POISONING [None]
  - ALCOHOLISM [None]
  - ANAEMIA [None]
  - ANGINA PECTORIS [None]
  - AORTIC ARTERIOSCLEROSIS [None]
  - ARTERIOSCLEROSIS CORONARY ARTERY [None]
  - BLOOD CHOLESTEROL INCREASED [None]
  - BLOOD URINE PRESENT [None]
  - DIAPHRAGMATIC HERNIA [None]
  - DYSPNOEA [None]
  - HAEMATEMESIS [None]
  - HAEMORRHOIDS [None]
  - HEAT EXPOSURE INJURY [None]
  - HYPERTENSION [None]
  - LIVER DISORDER [None]
  - MALLORY-WEISS SYNDROME [None]
  - SLEEP APNOEA SYNDROME [None]
  - SYNCOPE [None]
  - TOBACCO ABUSE [None]
  - UMBILICAL HERNIA [None]
